FAERS Safety Report 7554711-X (Version None)
Quarter: 2011Q2

REPORT INFORMATION
  Report Type: 
  Country: None (occurrence: None)
  Receive Date: 20110617
  Receipt Date: 20110610
  Transmission Date: 20111010
  Serious: Yes (Disabling, Other)
  Sender: FDA-Public Use
  Company Number: GB-CEPHALON-2010004756

PATIENT
  Sex: Male

DRUGS (4)
  1. TREANDA [Suspect]
     Route: 041
  2. TREANDA [Suspect]
     Indication: MANTLE CELL LYMPHOMA
     Route: 041
     Dates: start: 20100414
  3. TREANDA [Suspect]
     Route: 041
     Dates: end: 20100708
  4. RITUXIMAB [Suspect]
     Indication: MANTLE CELL LYMPHOMA
     Route: 042
     Dates: end: 20100707

REACTIONS (1)
  - PANCYTOPENIA [None]
